FAERS Safety Report 5573466-1 (Version None)
Quarter: 2007Q4

REPORT INFORMATION
  Report Type: 
  Country: None (occurrence: None)
  Receive Date: 20071220
  Receipt Date: 20071220
  Transmission Date: 20080405
  Serious: Yes (Hospitalization)
  Sender: FDA-Public Use
  Company Number: None

PATIENT
  Sex: Female
  Weight: 96.4 kg

DRUGS (4)
  1. CYTARABINE [Suspect]
     Dosage: 1491 MG
  2. DAUNORUBICIN HCL [Suspect]
     Dosage: 288 MG
  3. G-CSF (FILGRASTIM, AMGEN) [Suspect]
     Dosage: 2100 MCG
  4. LEUKINE [Suspect]
     Dosage: 2000 MCG

REACTIONS (17)
  - ACUTE MYELOID LEUKAEMIA [None]
  - ASPERGILLOSIS [None]
  - ATELECTASIS [None]
  - BONE MARROW FAILURE [None]
  - CHRONIC OBSTRUCTIVE PULMONARY DISEASE [None]
  - CONDITION AGGRAVATED [None]
  - LEUKOCYTOSIS [None]
  - LUNG NEOPLASM [None]
  - NEUTROPENIA [None]
  - PARAINFLUENZAE VIRUS INFECTION [None]
  - PNEUMONIA [None]
  - PUPILLARY REFLEX IMPAIRED [None]
  - PUPILS UNEQUAL [None]
  - RASH [None]
  - RENAL FAILURE [None]
  - RESPIRATORY DISTRESS [None]
  - RESPIRATORY FAILURE [None]
